FAERS Safety Report 11847784 (Version 1)
Quarter: 2015Q4

REPORT INFORMATION
  Report Type: Report from Study
  Country: US (occurrence: US)
  Receive Date: 20151217
  Receipt Date: 20151217
  Transmission Date: 20160305
  Serious: Yes (Hospitalization, Other)
  Sender: FDA-Public Use
  Company Number: US-BIOGEN-2010BI019728

PATIENT
  Age: 53 Year
  Sex: Female

DRUGS (11)
  1. AVONEX [Suspect]
     Active Substance: INTERFERON BETA-1A
     Indication: MULTIPLE SCLEROSIS
     Route: 030
  2. AVONEX [Suspect]
     Active Substance: INTERFERON BETA-1A
     Route: 030
     Dates: start: 2000
  3. AVONEX [Suspect]
     Active Substance: INTERFERON BETA-1A
     Route: 030
     Dates: start: 200405, end: 200810
  4. NEULASTA [Concomitant]
     Active Substance: PEGFILGRASTIM
     Indication: PRODUCT USED FOR UNKNOWN INDICATION
     Route: 065
     Dates: start: 201005
  5. AVONEX [Suspect]
     Active Substance: INTERFERON BETA-1A
     Route: 030
     Dates: start: 19991001
  6. AVONEX [Suspect]
     Active Substance: INTERFERON BETA-1A
     Route: 030
     Dates: start: 201011
  7. HYDROQUINONE. [Concomitant]
     Active Substance: HYDROQUINONE
     Indication: CHEMICAL INJURY
     Route: 065
  8. AVONEX [Suspect]
     Active Substance: INTERFERON BETA-1A
     Route: 030
     Dates: start: 20110801
  9. TRETINOIN. [Concomitant]
     Active Substance: TRETINOIN
     Indication: CHEMICAL INJURY
     Route: 065
  10. AVONEX [Suspect]
     Active Substance: INTERFERON BETA-1A
     Route: 030
     Dates: start: 200905, end: 20100601
  11. AVONEX [Suspect]
     Active Substance: INTERFERON BETA-1A
     Route: 030
     Dates: end: 20150101

REACTIONS (30)
  - Road traffic accident [Recovered/Resolved]
  - Lung infection [Recovered/Resolved]
  - Pneumonitis [Unknown]
  - Foot deformity [Unknown]
  - Renal failure [Recovered/Resolved]
  - Cognitive disorder [Recovered/Resolved]
  - Hypoaesthesia [Recovered/Resolved]
  - Thrombosis [Recovered/Resolved]
  - Rotator cuff syndrome [Recovered/Resolved]
  - Burning sensation [Recovered/Resolved]
  - Follicular mucinosis [Not Recovered/Not Resolved]
  - Polyarthritis [Not Recovered/Not Resolved]
  - Peripheral coldness [Unknown]
  - Limb operation [Recovered/Resolved]
  - Internal haemorrhage [Recovered/Resolved]
  - Anaemia [Recovered/Resolved]
  - Arthritis [Not Recovered/Not Resolved]
  - Amnesia [Not Recovered/Not Resolved]
  - Helicobacter infection [Unknown]
  - Gastric ulcer [Not Recovered/Not Resolved]
  - Injection site bruising [Recovered/Resolved]
  - Feeling abnormal [Recovered/Resolved]
  - Memory impairment [Not Recovered/Not Resolved]
  - Hypertension [Not Recovered/Not Resolved]
  - Iritis [Not Recovered/Not Resolved]
  - General symptom [Recovered/Resolved]
  - Breast cancer [Recovered/Resolved]
  - Transient ischaemic attack [Recovered/Resolved]
  - Blood cholesterol increased [Not Recovered/Not Resolved]
  - Musculoskeletal chest pain [Recovered/Resolved]

NARRATIVE: CASE EVENT DATE: 200210
